FAERS Safety Report 4900115-5 (Version None)
Quarter: 2006Q1

REPORT INFORMATION
  Report Type: 
  Country: None (occurrence: None)
  Receive Date: 20060201
  Receipt Date: 20060123
  Transmission Date: 20060701
  Serious: Yes (Other)
  Sender: FDA-Public Use
  Company Number: US200512004467

PATIENT
  Age: 67 Year
  Sex: Male
  Weight: 81.6475 kg

DRUGS (14)
  1. ALIMTA [Suspect]
     Indication: PERITONEAL MESOTHELIOMA MALIGNANT
     Dosage: 980 MG OTHER
     Dates: start: 20050411, end: 20060101
  2. CISPLATIN [Concomitant]
  3. CARBOPLATIN [Concomitant]
  4. VITAMIN B12 (CYANCOBALAMIN) [Concomitant]
  5. FOLIC ACID [Concomitant]
  6. DEXAMETHASONE [Concomitant]
  7. CHLORMAGEN (ASCORBIC ACID, CYANCOBALAMIN) [Concomitant]
  8. LEVOTHRYOXINE (LEVOTHRYOXINE) [Concomitant]
  9. ACIPHEX [Concomitant]
  10. FLOMAX [Concomitant]
  11. LISINOPRIL [Concomitant]
  12. HYDROCHLOROTHIAZIDE [Concomitant]
  13. DETROL -SLOW RELEASE (TOLTERODINE L-TARTRATE) [Concomitant]
  14. COLACE (DOCUSATE SODIUM) [Concomitant]

REACTIONS (6)
  - ARTHRALGIA [None]
  - JOINT EFFUSION [None]
  - MUSCULOSKELETAL STIFFNESS [None]
  - OEDEMA PERIPHERAL [None]
  - PAIN IN EXTREMITY [None]
  - POLYNEUROPATHY [None]
